FAERS Safety Report 5490690-7 (Version None)
Quarter: 2007Q4

REPORT INFORMATION
  Report Type: 
  Country: None (occurrence: None)
  Receive Date: 20071019
  Receipt Date: 20071016
  Transmission Date: 20080405
  Serious: Yes (Other)
  Sender: FDA-Public Use
  Company Number: A0687796A

PATIENT
  Age: 35 Year
  Sex: Female

DRUGS (2)
  1. ALLI [Suspect]
     Dates: start: 20070901, end: 20071028
  2. NO CONCURRENT MEDICATION [Concomitant]

REACTIONS (6)
  - FAECAL INCONTINENCE [None]
  - HAEMORRHOIDS [None]
  - PHARMACEUTICAL PRODUCT COMPLAINT [None]
  - PROCTALGIA [None]
  - RECTAL HAEMORRHAGE [None]
  - SENSORY DISTURBANCE [None]
